FAERS Safety Report 9412083 (Version 2)
Quarter: 2013Q3

REPORT INFORMATION
  Report Type: Spontaneous
  Country: AT (occurrence: AT)
  Receive Date: 20130722
  Receipt Date: 20130730
  Transmission Date: 20140515
  Serious: Yes (Other)
  Sender: FDA-Public Use
  Company Number: AT-AMGEN-AUTSP2013050562

PATIENT
  Age: 65 Year
  Sex: Female

DRUGS (7)
  1. PROLIA [Suspect]
     Indication: OSTEOPOROSIS
     Dosage: 60 MG, Q6MO
     Route: 065
     Dates: start: 20120620, end: 20130424
  2. CONCOR PLUS [Concomitant]
     Indication: HYPERTENSION
     Dosage: UNK
     Route: 048
     Dates: start: 201111
  3. ZANIPRIL [Concomitant]
     Indication: HYPERTENSION
     Dosage: 10 MG, QD
     Route: 048
     Dates: start: 201111
  4. CALCIUM +VIT D [Concomitant]
     Indication: OSTEOPOROSIS
     Dosage: 500 MG/ 1000 MG
     Route: 048
     Dates: start: 2000
  5. NOVALGIN                           /00169801/ [Concomitant]
  6. SERACTIL [Concomitant]
  7. AUGMENTIN                          /00756801/ [Concomitant]
     Dosage: FOR ONE WEEK IN OCT/2012

REACTIONS (1)
  - Osteonecrosis of jaw [Not Recovered/Not Resolved]
